FAERS Safety Report 19349125 (Version 1)
Quarter: 2021Q2

REPORT INFORMATION
  Report Type: Spontaneous
  Country: US (occurrence: US)
  Receive Date: 20210529
  Receipt Date: 20210529
  Transmission Date: 20210717
  Serious: Yes (Hospitalization)
  Sender: FDA-Public Use
  Company Number: None

PATIENT
  Age: 43 Year
  Sex: Female
  Weight: 63 kg

DRUGS (7)
  1. ALDACTONE [Concomitant]
     Active Substance: SPIRONOLACTONE
  2. EMGALITY [Suspect]
     Active Substance: GALCANEZUMAB-GNLM
     Indication: MIGRAINE
     Dosage: ?          OTHER STRENGTH:ONE SYRINGE;OTHER FREQUENCY:MONTHLY;?
     Route: 058
     Dates: start: 20210326, end: 20210426
  3. GABAPENTIN. [Concomitant]
     Active Substance: GABAPENTIN
  4. ASA [Concomitant]
     Active Substance: ASPIRIN
  5. TOPROL XL [Concomitant]
     Active Substance: METOPROLOL SUCCINATE
  6. MVI [Concomitant]
     Active Substance: VITAMINS
  7. TYLENOL [Concomitant]
     Active Substance: ACETAMINOPHEN

REACTIONS (8)
  - Hypoaesthesia [None]
  - Depression [None]
  - Vision blurred [None]
  - Speech disorder [None]
  - Cerebrovascular accident [None]
  - Blood pressure increased [None]
  - Weight increased [None]
  - Back pain [None]

NARRATIVE: CASE EVENT DATE: 20210505
